FAERS Safety Report 24298547 (Version 1)
Quarter: 2024Q3

REPORT INFORMATION
  Report Type: Spontaneous
  Country: CN (occurrence: CN)
  Receive Date: 20240909
  Receipt Date: 20240909
  Transmission Date: 20241017
  Serious: Yes (Life-Threatening, Other)
  Sender: BAYER
  Company Number: CN-BAYER-2024A128370

PATIENT
  Age: 64 Year
  Sex: Male
  Weight: 80 kg

DRUGS (6)
  1. ULTRAVIST [Suspect]
     Active Substance: IOPROMIDE
     Indication: Perfusion brain scan
     Dosage: 50 ML, ONCE
     Route: 042
     Dates: start: 20240830, end: 20240830
  2. ULTRAVIST [Suspect]
     Active Substance: IOPROMIDE
     Indication: Computerised tomogram head
  3. ULTRAVIST [Suspect]
     Active Substance: IOPROMIDE
     Indication: Arteriogram carotid
  4. ULTRAVIST [Suspect]
     Active Substance: IOPROMIDE
     Indication: Computerised tomogram thorax
  5. ULTRAVIST [Suspect]
     Active Substance: IOPROMIDE
     Indication: Cerebral artery stenosis
  6. ULTRAVIST [Suspect]
     Active Substance: IOPROMIDE
     Indication: Cerebral ischaemia

REACTIONS (6)
  - Anaphylactic shock [Recovered/Resolved]
  - Chest discomfort [Recovered/Resolved]
  - Blood pressure decreased [Recovered/Resolved]
  - Palpitations [Recovered/Resolved]
  - Oxygen saturation decreased [Recovered/Resolved]
  - Heart rate decreased [Recovered/Resolved]

NARRATIVE: CASE EVENT DATE: 20240830
